FAERS Safety Report 5128671-5 (Version None)
Quarter: 2006Q4

REPORT INFORMATION
  Report Type: 
  Country: None (occurrence: None)
  Receive Date: 20061011
  Receipt Date: 20060927
  Transmission Date: 20070319
  Serious: Yes (Death)
  Sender: FDA-Public Use
  Company Number: KADN20060032

PATIENT
  Age: 41 Year
  Sex: Female
  Weight: 72.5755 kg

DRUGS (6)
  1. KADIAN [Suspect]
     Indication: BACK PAIN
     Dosage: 60 MG DAILY PO
     Route: 048
     Dates: start: 20031022, end: 20031023
  2. AMITRIPTYLINE 75 MG [Suspect]
     Indication: DEPRESSION
     Dosage: 75 MG DAILY PO
     Route: 048
     Dates: end: 20031001
  3. TRAMADOL [Concomitant]
  4. CELEXA [Concomitant]
  5. DIAZEPAM [Concomitant]
  6. PREVACID [Concomitant]

REACTIONS (5)
  - COMPLETED SUICIDE [None]
  - DRUG TOLERANCE INCREASED [None]
  - DRUG WITHDRAWAL SYNDROME [None]
  - MULTIPLE DRUG OVERDOSE INTENTIONAL [None]
  - WRONG TECHNIQUE IN DRUG USAGE PROCESS [None]
